FAERS Safety Report 5264058-2 (Version None)
Quarter: 2007Q1

REPORT INFORMATION
  Report Type: 
  Country: None (occurrence: None)
  Receive Date: 20070313
  Receipt Date: 20070302
  Transmission Date: 20070707
  Serious: Yes (Other)
  Sender: FDA-Public Use
  Company Number: US-PFIZER INC-001-0981-983576

PATIENT
  Sex: Female
  Weight: 49.9 kg

DRUGS (4)
  1. LIPITOR [Suspect]
     Indication: BLOOD CHOLESTEROL INCREASED
     Route: 048
  2. LIPITOR [Suspect]
  3. ASPIRIN [Concomitant]
  4. ASPIRIN [Concomitant]

REACTIONS (6)
  - ABASIA [None]
  - BACK PAIN [None]
  - BLOOD PRESSURE INCREASED [None]
  - CONSTIPATION [None]
  - MYALGIA [None]
  - PAIN [None]
